FAERS Safety Report 10891750 (Version 3)
Quarter: 2015Q1

REPORT INFORMATION
  Report Type: Spontaneous
  Country: FR (occurrence: FR)
  Receive Date: 20150306
  Receipt Date: 20150330
  Transmission Date: 20150721
  Serious: Yes (Hospitalization, Other)
  Sender: FDA-Public Use
  Company Number: FR-SA-2015SA025370

PATIENT
  Age: 83 Year
  Sex: Male

DRUGS (2)
  1. ALLOPURINOL. [Concomitant]
     Active Substance: ALLOPURINOL
     Indication: GOUT
     Route: 065
  2. BCG FOR IMMUNOTHERAPY [Suspect]
     Active Substance: BACILLUS CALMETTE-GUERIN ANTIGEN, UNSPECIFIED SUBSTRAIN
     Indication: BLADDER CANCER
     Route: 065

REACTIONS (13)
  - Hemiparesis [Recovered/Resolved]
  - Aortic aneurysm [Recovered/Resolved]
  - Asthenia [Recovered/Resolved]
  - Pyrexia [Recovered/Resolved]
  - General physical health deterioration [Recovered/Resolved]
  - Anaemia [Recovered/Resolved]
  - Splenic infarction [Recovered/Resolved]
  - Abdominal pain upper [Recovered/Resolved]
  - Granulomatous liver disease [Recovered/Resolved]
  - Liver tenderness [Recovered/Resolved]
  - Cerebrovascular accident [Recovered/Resolved]
  - Weight decreased [Recovered/Resolved]
  - Cachexia [Recovered/Resolved]
